FAERS Safety Report 12612247 (Version 2)
Quarter: 2016Q4

REPORT INFORMATION
  Report Type: Report from Study
  Country: GB (occurrence: GB)
  Receive Date: 20160801
  Receipt Date: 20161122
  Transmission Date: 20170207
  Serious: Yes (Hospitalization)
  Sender: FDA-Public Use
  Company Number: PHFR2016GB004082

PATIENT
  Age: 33 Year
  Sex: Male

DRUGS (1)
  1. COSENTYX [Suspect]
     Active Substance: SECUKINUMAB
     Indication: PSORIASIS
     Dosage: 150 MG, UNK
     Route: 065

REACTIONS (6)
  - Diarrhoea [Unknown]
  - Diarrhoea haemorrhagic [Unknown]
  - Malaise [Unknown]
  - Gastrointestinal inflammation [Unknown]
  - Colitis ulcerative [Recovered/Resolved with Sequelae]
  - Lower gastrointestinal haemorrhage [Unknown]

NARRATIVE: CASE EVENT DATE: 20160219
